FAERS Safety Report 11048272 (Version 1)
Quarter: 2015Q2

REPORT INFORMATION
  Report Type: Spontaneous
  Country: CA (occurrence: CA)
  Receive Date: 20150420
  Receipt Date: 20150420
  Transmission Date: 20150821
  Serious: Yes (Other)
  Sender: FDA-Public Use
  Company Number: CA-TEVA-555699ACC

PATIENT
  Age: 64 Year
  Sex: Male
  Weight: 88.53 kg

DRUGS (2)
  1. OLANZAPINE. [Suspect]
     Active Substance: OLANZAPINE
     Indication: AFFECTIVE DISORDER
     Route: 048
  2. PRISTIQ EXTENDED RELEASE [Concomitant]
     Active Substance: DESVENLAFAXINE SUCCINATE
     Dosage: UNKNOWN FORM OF STRENGTH
     Route: 065

REACTIONS (5)
  - Depression [Unknown]
  - Condition aggravated [Unknown]
  - Irritability [Unknown]
  - Drug ineffective [Unknown]
  - Suicidal ideation [Unknown]
